FAERS Safety Report 22106854 (Version 1)
Quarter: 2023Q1

REPORT INFORMATION
  Report Type: Spontaneous
  Country: PT (occurrence: PT)
  Receive Date: 20230317
  Receipt Date: 20230317
  Transmission Date: 20230418
  Serious: Yes (Other)
  Sender: FDA-Public Use
  Company Number: None

PATIENT
  Age: 63 Year
  Sex: Female

DRUGS (1)
  1. OXALIPLATIN [Suspect]
     Active Substance: OXALIPLATIN

REACTIONS (5)
  - Acute respiratory failure [Unknown]
  - Cardiac failure [Unknown]
  - Hyperhidrosis [Unknown]
  - Erythema [Unknown]
  - Nausea [Unknown]

NARRATIVE: CASE EVENT DATE: 20220608
